FAERS Safety Report 12160957 (Version 2)
Quarter: 2019Q4

REPORT INFORMATION
  Report Type: Spontaneous
  Country: DE (occurrence: DE)
  Receive Date: 20160308
  Receipt Date: 20191216
  Transmission Date: 20200122
  Serious: Yes (Other)
  Sender: FDA-Public Use
  Company Number: DE-TEVA-640185GER

PATIENT
  Age: 35 Year
  Sex: Female
  Weight: 92 kg

DRUGS (5)
  1. CITALOPRAM [Suspect]
     Active Substance: CITALOPRAM HYDROBROMIDE
     Indication: DEPRESSION
     Dosage: 10 MILLIGRAM DAILY;
     Route: 048
     Dates: start: 20150215, end: 20151111
  2. TIANEURAX [Suspect]
     Active Substance: TIANEPTINE SODIUM
     Indication: DEPRESSION
     Dosage: 12.5 MILLIGRAM DAILY;
     Route: 048
     Dates: start: 20150215, end: 20151111
  3. MIRTAZAPIN [Suspect]
     Active Substance: MIRTAZAPINE
     Indication: SLEEP DISORDER
     Dosage: 7.5 MILLIGRAM DAILY;
     Route: 048
     Dates: start: 20150215, end: 20151111
  4. METOHEXAL [Concomitant]
     Active Substance: METOPROLOL
     Indication: ARRHYTHMIA
     Dosage: 71.25 MILLIGRAM DAILY; (23.75 MG-0-47.5MG)
     Route: 048
     Dates: start: 20150215, end: 20151111
  5. FEMIBION [Concomitant]
     Indication: VITAMIN SUPPLEMENTATION
     Dosage: PROBABLY UNTIL DELIVERY; HOWEVER, DURATION OF INTAKE WAS NOT TOLD.
     Route: 048

REACTIONS (4)
  - Maternal exposure during pregnancy [Unknown]
  - Live birth [Unknown]
  - Gestational diabetes [Recovered/Resolved]
  - Polyhydramnios [Recovered/Resolved]
